FAERS Safety Report 14489878 (Version 1)
Quarter: 2018Q1

REPORT INFORMATION
  Report Type: Spontaneous
  Country: US (occurrence: US)
  Receive Date: 20180206
  Receipt Date: 20180206
  Transmission Date: 20180509
  Serious: Yes (Death, Hospitalization, Other)
  Sender: FDA-Public Use
  Company Number: US-VISTAPHARM, INC.-VER201801-000282

PATIENT
  Age: 37 Year
  Sex: Female

DRUGS (7)
  1. DIAZEPAM. [Concomitant]
     Active Substance: DIAZEPAM
     Indication: SEIZURE
  2. LEVETIRACETAM. [Concomitant]
     Active Substance: LEVETIRACETAM
     Indication: SEIZURE
  3. VALPROIC ACID. [Suspect]
     Active Substance: VALPROIC ACID
     Indication: SEIZURE
  4. PHENYTOIN. [Concomitant]
     Active Substance: PHENYTOIN
     Indication: SEIZURE
  5. PHENYTOIN. [Concomitant]
     Active Substance: PHENYTOIN
     Route: 042
  6. LORAZEPAM. [Concomitant]
     Active Substance: LORAZEPAM
     Indication: SEIZURE
  7. VALPROIC ACID. [Suspect]
     Active Substance: VALPROIC ACID

REACTIONS (4)
  - Brain oedema [Fatal]
  - Encephalopathy [Not Recovered/Not Resolved]
  - Brain herniation [Fatal]
  - Acute hepatic failure [Fatal]
